FAERS Safety Report 7343781-X (Version None)
Quarter: 2011Q1

REPORT INFORMATION
  Report Type: 
  Country: None (occurrence: None)
  Receive Date: 20110310
  Receipt Date: 20110303
  Transmission Date: 20110831
  Serious: Yes (Other)
  Sender: FDA-Public Use
  Company Number: US-AMGEN-USASP2011012274

PATIENT
  Age: 41 Year
  Sex: Male

DRUGS (1)
  1. EPOGEN [Suspect]
     Indication: RENAL FAILURE CHRONIC

REACTIONS (1)
  - HAEMOGLOBIN DECREASED [None]
